FAERS Safety Report 5006942-0 (Version None)
Quarter: 2006Q1

REPORT INFORMATION
  Report Type: 
  Country: None (occurrence: None)
  Receive Date: 20060320
  Receipt Date: 20051205
  Transmission Date: 20060701
  Serious: Yes (Hospitalization, Other)
  Sender: FDA-Public Use
  Company Number: 2005-12-0194

PATIENT
  Age: 52 Year
  Sex: Female
  Weight: 45.3597 kg

DRUGS (23)
  1. PEG-INTRON [Suspect]
     Indication: HEPATITIS C
     Dosage: ^90 PEN^  QWK SUBCUTANEOUS
     Route: 058
     Dates: start: 20050428
  2. REBETOL [Suspect]
     Indication: HEPATITIS C
     Dosage: 1200 MG QD ORAL
     Route: 048
  3. LASIX [Concomitant]
  4. SPIRONOLACTONE [Concomitant]
  5. XANAX [Concomitant]
  6. REGLAN [Concomitant]
  7. CYTOMEL [Concomitant]
  8. POTASSIUM CHLORIDE [Concomitant]
  9. SINGULAIR [Concomitant]
  10. INDERAL [Concomitant]
  11. EFFEXOR [Concomitant]
  12. CYPROHEPTADINE HCL [Concomitant]
  13. SOME [Concomitant]
  14. NEXIUM [Concomitant]
  15. SYNTHROID [Concomitant]
  16. TRAZODONE HCL [Concomitant]
  17. AMBIEN [Concomitant]
  18. SEREVENT [Concomitant]
  19. ALBUTEROL SULFATE AUTOHALER [Concomitant]
  20. FLONASE [Concomitant]
  21. BENADRYL [Concomitant]
  22. URSO [Concomitant]
  23. VITAMIN B-12 [Concomitant]

REACTIONS (3)
  - ASTHENIA [None]
  - DYSPNOEA [None]
  - HAEMOLYTIC ANAEMIA [None]
